FAERS Safety Report 17944570 (Version 8)
Quarter: 2022Q1

REPORT INFORMATION
  Report Type: Report from Study
  Country: FR (occurrence: FR)
  Receive Date: 20200625
  Receipt Date: 20220112
  Transmission Date: 20220424
  Serious: Yes (Life-Threatening, Hospitalization, Other)
  Sender: FDA-Public Use
  Company Number: FR-BRISTOL-MYERS SQUIBB COMPANY-BMS-2018-104913

PATIENT
  Age: 85 Year
  Sex: Male

DRUGS (20)
  1. APIXABAN [Suspect]
     Active Substance: APIXABAN
     Dosage: 5 MG, DAILY DOSAGE
     Route: 048
     Dates: start: 20171023, end: 20180719
  2. RAMIPRIL [Suspect]
     Active Substance: RAMIPRIL
     Dosage: 10 MILLIGRAM
     Route: 048
  3. AMPHOTERICIN B [Suspect]
     Active Substance: AMPHOTERICIN B
     Indication: Antibiotic therapy
     Dosage: 15 DF, 1X/DAY (15 OTHER, QD)
     Route: 048
  4. AMPHOTERICIN B [Suspect]
     Active Substance: AMPHOTERICIN B
     Indication: Antifungal prophylaxis
  5. OXEPAM [Suspect]
     Active Substance: OXAZEPAM
     Indication: Anxiolytic therapy
     Dosage: 10 MILLIGRAM
     Route: 048
  6. FUROSEMIDE [Suspect]
     Active Substance: FUROSEMIDE
     Indication: Polyuria
     Dosage: 20 MG, DAILY DOSE
     Route: 048
  7. CELIPROLOL [Suspect]
     Active Substance: CELIPROLOL
     Dosage: 200 MILLIGRAM
     Route: 048
  8. SPIRIVA [Concomitant]
     Active Substance: TIOTROPIUM BROMIDE MONOHYDRATE
     Indication: Antasthmatic drug level
     Dosage: UNK
     Route: 048
  9. PANTOPRAZOLE [Concomitant]
     Active Substance: PANTOPRAZOLE
     Dosage: 40 MG, DAILY DOSE
     Route: 048
  10. IVABRADINE [Concomitant]
     Active Substance: IVABRADINE
     Dosage: 10 MG, DAILY DOSE
     Route: 048
  11. ASPIRIN [Concomitant]
     Active Substance: ASPIRIN
     Dosage: 100 MG, DAILY DOSE
     Route: 048
  12. POTASSIUM [Concomitant]
     Active Substance: POTASSIUM
     Indication: Hypokalaemia
     Dosage: 80 MILLIGRAM, QD
     Route: 048
     Dates: start: 201807, end: 201810
  13. POTASSIUM [Concomitant]
     Active Substance: POTASSIUM
     Dosage: 1200 MG, DAILY DOSE
     Route: 048
  14. POTASSIUM [Concomitant]
     Active Substance: POTASSIUM
     Dosage: 3600 MILLIGRAM, DAILY DOSE
     Route: 048
  15. HYDROXYZINE [Concomitant]
     Active Substance: HYDROXYZINE HYDROCHLORIDE
     Indication: Anxiolytic therapy
     Dosage: 25 MG, DAILY DOSE
     Route: 048
  16. ATORVASTATIN [Concomitant]
     Active Substance: ATORVASTATIN
     Indication: Hyperlipidaemia
     Dosage: 80 MILLIGRAM, QD
     Route: 048
  17. CHOLECALCIFEROL [Concomitant]
     Active Substance: CHOLECALCIFEROL
     Indication: Vitamin D
     Dosage: 1000 INTERNATIONAL UNIT, QD
     Route: 048
     Dates: start: 201807, end: 201809
  18. CYANOCOBALAMIN [Concomitant]
     Active Substance: CYANOCOBALAMIN
     Indication: Vitamin B12
     Dosage: 100000 MICROGRAM, QD
     Route: 048
     Dates: start: 201807, end: 201811
  19. POLYETHYLENE GLYCOLS [Concomitant]
     Active Substance: POLYETHYLENE GLYCOLS
     Indication: Laxative supportive care
     Dosage: 1000 MILLIGRAM, QD
     Route: 048
     Dates: start: 201807
  20. FERROUS SULFATE [Concomitant]
     Active Substance: FERROUS SULFATE
     Dosage: 80 MILLIGRAM
     Route: 048
     Dates: start: 201807, end: 201810

REACTIONS (2)
  - Pulmonary oedema [Recovered/Resolved]
  - Acute coronary syndrome [Recovered/Resolved]

NARRATIVE: CASE EVENT DATE: 20180705
